FAERS Safety Report 5501370-3 (Version None)
Quarter: 2007Q4

REPORT INFORMATION
  Report Type: 
  Country: None (occurrence: None)
  Receive Date: 20071026
  Receipt Date: 20071010
  Transmission Date: 20080405
  Serious: Yes (Death, Other)
  Sender: FDA-Public Use
  Company Number: 2007EU002278

PATIENT
  Age: 69 Year
  Sex: Male

DRUGS (3)
  1. PROGRAF [Suspect]
     Indication: LIVER TRANSPLANT
     Dosage: 0.5 MG, BID; 1 MG, UID/QD
     Dates: start: 19970101, end: 20040101
  2. PROGRAF [Suspect]
     Indication: LIVER TRANSPLANT
     Dosage: 0.5 MG, BID; 1 MG, UID/QD
     Dates: start: 20040101
  3. PREDNISONE TAB [Concomitant]

REACTIONS (8)
  - ACTINIC KERATOSIS [None]
  - BASAL CELL CARCINOMA [None]
  - LIVER DISORDER [None]
  - NEOPLASM RECURRENCE [None]
  - NEUROENDOCRINE CARCINOMA OF THE SKIN [None]
  - SEPSIS [None]
  - SKIN GRAFT [None]
  - SQUAMOUS CELL CARCINOMA [None]
